FAERS Safety Report 13890518 (Version 1)
Quarter: 2017Q3

REPORT INFORMATION
  Report Type: Spontaneous
  Country: FR (occurrence: FR)
  Receive Date: 20170822
  Receipt Date: 20170822
  Transmission Date: 20171127
  Serious: Yes (Hospitalization, Other)
  Sender: FDA-Public Use
  Company Number: FR-MYLANLABS-M-EU-2017020528

PATIENT

DRUGS (18)
  1. AUGMENTIN [Suspect]
     Active Substance: AMOXICILLIN\CLAVULANATE POTASSIUM
     Dosage: 3 G, QD
     Route: 042
     Dates: start: 20161216
  2. RAMIPRIL 1.25 MG (RAMIPRIL) UNKNOWN, 1.25MG [Suspect]
     Active Substance: RAMIPRIL
     Indication: CARDIAC FAILURE
     Dosage: DAILY DOSE: 1.25 MG MILLGRAM(S) EVERY DAYS
     Dates: start: 20161208
  3. AUGMENTIN [Suspect]
     Active Substance: AMOXICILLIN\CLAVULANATE POTASSIUM
     Indication: INFECTION
     Dosage: 3 G, QD
     Route: 042
     Dates: start: 20161210, end: 20161215
  4. CALCIPARINE [Suspect]
     Active Substance: HEPARIN CALCIUM
     Indication: CARDIAC FAILURE
     Dosage: UNK
     Route: 058
     Dates: start: 20161205
  5. PREVISCAN [Suspect]
     Active Substance: FLUINDIONE
     Indication: THROMBOSIS PROPHYLAXIS
     Dosage: 20 MG, UNK
     Route: 048
     Dates: start: 20161229
  6. ZOPICLONE [Suspect]
     Active Substance: ZOPICLONE
     Indication: SLEEP DISORDER
     Dosage: 7.25 MG, UNK
     Route: 048
     Dates: start: 20161207
  7. PERINDOPRIL [Suspect]
     Active Substance: PERINDOPRIL
     Indication: CARDIAC FAILURE
     Dosage: UNK
     Dates: start: 20161229
  8. PANTOPRAZOLE [Suspect]
     Active Substance: PANTOPRAZOLE
     Indication: PROPHYLAXIS AGAINST GASTROINTESTINAL ULCER
     Dosage: DAILY DOSE: 20 MG MILLGRAM(S) EVERY DAYS
     Dates: start: 20161210
  9. AMIODARONE 1200MG [Suspect]
     Active Substance: AMIODARONE
     Indication: ATRIAL FIBRILLATION
     Dosage: 1200 MG, UNK
     Route: 042
     Dates: start: 20161205, end: 20161206
  10. DIGOXINE NATIVELLE [Suspect]
     Active Substance: DIGOXIN
     Dosage: 1 DF, QD
     Route: 042
     Dates: start: 20161209, end: 20161220
  11. DIGOXIN NATIVELLE [Suspect]
     Active Substance: DIGOXIN
     Indication: CARDIAC FAILURE
     Dosage: .25 MG, UNK
     Route: 048
     Dates: start: 20161209
  12. BISOPROLOL [Suspect]
     Active Substance: BISOPROLOL
     Indication: CARDIAC FAILURE
     Dosage: UNK
     Route: 048
     Dates: start: 20161205
  13. ALPRAZOLAM. [Suspect]
     Active Substance: ALPRAZOLAM
     Indication: ANXIETY
     Dosage: .5 MG, UNK
     Route: 058
     Dates: start: 20170106
  14. DIGOXINE NATIVELLE [Suspect]
     Active Substance: DIGOXIN
     Indication: CARDIAC FAILURE
     Dosage: ADULT 0.50 MG/2 MG
     Route: 042
     Dates: start: 20161208, end: 20161208
  15. ALFUZOSIN 10MG [Suspect]
     Active Substance: ALFUZOSIN
     Indication: BENIGN PROSTATIC HYPERPLASIA
     Dosage: DAILY DOSE: 10 MG MILLGRAM(S) EVERY DAYS
     Route: 048
     Dates: start: 20161220
  16. KARDEGIC [Suspect]
     Active Substance: ASPIRIN LYSINE
     Indication: PLATELET AGGREGATION INHIBITION
     Dosage: DAILY DOSE: 1 DF DOSAGE FORM EVERY DAYS
     Route: 048
     Dates: start: 20161209
  17. ROXITHROMYCIN 150 MG [Suspect]
     Active Substance: ROXITHROMYCIN
     Indication: INFECTION
     Dosage: DAILY DOSE: 150 MG MILLGRAM(S) EVERY 2 DAYS
     Dates: start: 20161214
  18. FUROSEMIDE. [Suspect]
     Active Substance: FUROSEMIDE
     Indication: CARDIAC FAILURE
     Dosage: UNK
     Route: 048
     Dates: start: 20161207

REACTIONS (3)
  - Hepatitis [Not Recovered/Not Resolved]
  - Cholestasis [Recovered/Resolved]
  - Jaundice [Recovered/Resolved]

NARRATIVE: CASE EVENT DATE: 20170112
